FAERS Safety Report 9191118 (Version 1)
Quarter: 2013Q1

REPORT INFORMATION
  Report Type: Spontaneous
  Country: US (occurrence: US)
  Receive Date: 20130326
  Receipt Date: 20130326
  Transmission Date: 20140127
  Serious: No
  Sender: FDA-Public Use
  Company Number: US-B.I. PHARMACEUTICALS,INC./RIDGEFIELD-2013-BI-07519BP

PATIENT
  Sex: Female
  Weight: 57 kg

DRUGS (1)
  1. MICARDIS HCT [Suspect]
     Indication: HYPERTENSION
     Route: 048
     Dates: start: 2008

REACTIONS (6)
  - Musculoskeletal discomfort [Recovered/Resolved]
  - Chest pain [Recovered/Resolved]
  - Local swelling [Recovered/Resolved]
  - Nasal congestion [Recovered/Resolved]
  - Pain in extremity [Recovered/Resolved]
  - Somnolence [Recovered/Resolved]
